FAERS Safety Report 9721006 (Version 1)
Quarter: 2013Q4

REPORT INFORMATION
  Report Type: Spontaneous
  Country: US (occurrence: US)
  Receive Date: 20131129
  Receipt Date: 20131129
  Transmission Date: 20140711
  Serious: No
  Sender: FDA-Public Use
  Company Number: US-B.I. PHARMACEUTICALS,INC./RIDGEFIELD-2013-BI-38198BP

PATIENT
  Age: 80 Year
  Sex: Female

DRUGS (2)
  1. PRADAXA [Suspect]
     Indication: ATRIAL FIBRILLATION
     Dosage: 150 MG
     Route: 048
     Dates: start: 201302
  2. TYLENOL ARTHRITIS [Concomitant]
     Indication: ARTHRITIS
     Route: 048

REACTIONS (2)
  - Blood pressure normal [Not Recovered/Not Resolved]
  - Dizziness postural [Recovered/Resolved]
